FAERS Safety Report 6468860-0 (Version None)
Quarter: 2009Q4

REPORT INFORMATION
  Report Type: 
  Country: None (occurrence: None)
  Receive Date: 20091203
  Receipt Date: 20080626
  Transmission Date: 20100525
  Serious: Yes (Life-Threatening, Hospitalization, Disabling, Other)
  Sender: FDA-Public Use
  Company Number: JP-ELI_LILLY_AND_COMPANY-JP200608000603

PATIENT
  Sex: Female
  Weight: 72 kg

DRUGS (9)
  1. OLANZAPINE [Suspect]
     Indication: SCHIZOPHRENIA
     Dosage: 20 MG, DAILY (1/D)
     Route: 048
     Dates: start: 20050728, end: 20050803
  2. OLANZAPINE [Suspect]
     Dosage: 20 MG, DAILY (1/D)
     Route: 048
     Dates: start: 20050804
  3. RISPERDAL [Concomitant]
     Indication: DELUSION
     Dosage: 2 MG, DAILY (1/D)
     Route: 048
     Dates: start: 20050701
  4. AKINETON [Concomitant]
     Indication: EXTRAPYRAMIDAL DISORDER
     Dosage: 3 MG, DAILY (1/D)
     Route: 048
  5. ARTANE [Concomitant]
     Indication: EXTRAPYRAMIDAL DISORDER
     Dosage: 2 MG, DAILY (1/D)
     Route: 048
     Dates: start: 20050223
  6. PAXIL [Concomitant]
     Indication: DEPRESSION
     Dosage: 40 MG, DAILY (1/D)
     Route: 048
  7. SOLANAX [Concomitant]
     Indication: ANXIETY
     Dosage: 0.8 MG, DAILY (1/D)
     Route: 048
     Dates: end: 20060612
  8. ACINON [Concomitant]
     Indication: WEIGHT INCREASED
     Dosage: 300 MG, DAILY (1/D)
     Route: 048
     Dates: start: 20060310
  9. DEPAS [Concomitant]
     Indication: ANXIETY
     Dosage: 1 MEQ, AS NEEDED
     Route: 048
     Dates: start: 20050923

REACTIONS (10)
  - APALLIC SYNDROME [None]
  - BREAST MASS [None]
  - CARDIO-RESPIRATORY ARREST [None]
  - CHRONIC SINUSITIS [None]
  - DECUBITUS ULCER [None]
  - INAPPROPRIATE ANTIDIURETIC HORMONE SECRETION [None]
  - MENTAL IMPAIRMENT [None]
  - NEUROLEPTIC MALIGNANT SYNDROME [None]
  - PYREXIA [None]
  - WEIGHT INCREASED [None]
